FAERS Safety Report 5726666-1 (Version None)
Quarter: 2008Q2

REPORT INFORMATION
  Report Type: 
  Country: None (occurrence: None)
  Receive Date: 20080502
  Receipt Date: 20080422
  Transmission Date: 20081010
  Serious: Yes (Other)
  Sender: FDA-Public Use
  Company Number: FR-ROCHE-560666

PATIENT
  Age: 15 Year
  Sex: Male
  Weight: 70 kg

DRUGS (1)
  1. ROACCUTANE [Suspect]
     Dosage: START DATE REPORTED AS 2006
     Route: 065
     Dates: end: 20060128

REACTIONS (5)
  - ARTHRALGIA [None]
  - COUGH [None]
  - DYSPNOEA [None]
  - HEADACHE [None]
  - MYALGIA [None]
